FAERS Safety Report 8787551 (Version 1)
Quarter: 2012Q4

REPORT INFORMATION
  Report Type: Report from Study
  Country: US (occurrence: US)
  Receive Date: 20120914
  Receipt Date: 20120914
  Transmission Date: 20130627
  Serious: No
  Sender: FDA-Public Use
  Company Number: US-VERTEX PHARMACEUTICAL INC.-AE-2012-009305

PATIENT
  Age: 59 None
  Sex: Male
  Weight: 79.55 kg

DRUGS (10)
  1. INCIVEK [Suspect]
     Indication: HEPATITIS C
     Route: 048
     Dates: start: 20120601
  2. RIBASPHERE [Concomitant]
     Indication: HEPATITIS C
     Route: 048
     Dates: start: 20120601
  3. PEGINTRON [Concomitant]
     Indication: HEPATITIS C
     Route: 058
     Dates: start: 20120601
  4. MULTIVITAMIN [Concomitant]
  5. CALCIUM [Concomitant]
  6. ASPIRIN [Concomitant]
  7. CVS FISH OIL [Concomitant]
  8. CVS VITAMIN B 12 [Concomitant]
  9. CVS VITAMIN E [Concomitant]
  10. METFORMIN HCL ER [Concomitant]
     Indication: DIABETES MELLITUS

REACTIONS (19)
  - Cystitis [Unknown]
  - Nephrolithiasis [Unknown]
  - Urge incontinence [Unknown]
  - Blood urine present [Unknown]
  - White blood cell count decreased [Not Recovered/Not Resolved]
  - Headache [Not Recovered/Not Resolved]
  - Pyrexia [Not Recovered/Not Resolved]
  - Skin discolouration [Unknown]
  - Weight decreased [Unknown]
  - Insomnia [Unknown]
  - Somnolence [Unknown]
  - Skin ulcer [Not Recovered/Not Resolved]
  - Decreased appetite [Unknown]
  - Injection site erythema [Unknown]
  - Fatigue [Unknown]
  - Rash [Unknown]
  - Anaemia [Not Recovered/Not Resolved]
  - Haematochezia [Recovered/Resolved]
  - Red blood cell count decreased [Unknown]
